FAERS Safety Report 19443559 (Version 2)
Quarter: 2021Q3

REPORT INFORMATION
  Report Type: Spontaneous
  Country: US (occurrence: US)
  Receive Date: 20210621
  Receipt Date: 20210920
  Transmission Date: 20211014
  Serious: Yes (Disabling, Other)
  Sender: FDA-Public Use
  Company Number: US-AMGEN-USASP2021091983

PATIENT
  Sex: Female

DRUGS (7)
  1. VITAMIN B12 [Concomitant]
     Active Substance: CYANOCOBALAMIN
  2. REPATHA [Suspect]
     Active Substance: EVOLOCUMAB
     Indication: PRODUCT USED FOR UNKNOWN INDICATION
     Dosage: 420 MILLIGRAM
     Route: 065
     Dates: start: 20210228, end: 20210425
  3. COENZYME Q10 [Concomitant]
     Active Substance: DIETARY SUPPLEMENT\UBIDECARENONE
     Dosage: UNK
  4. VITAMIN D [ERGOCALCIFEROL] [Concomitant]
     Active Substance: ERGOCALCIFEROL
     Dosage: UNK
  5. BRILINTA [Concomitant]
     Active Substance: TICAGRELOR
     Indication: CARDIAC DISORDER
  6. METOPROLOL. [Concomitant]
     Active Substance: METOPROLOL
     Indication: CARDIAC DISORDER
  7. FISH OIL [Concomitant]
     Active Substance: FISH OIL

REACTIONS (30)
  - Musculoskeletal stiffness [Not Recovered/Not Resolved]
  - Hypoacusis [Unknown]
  - Dry skin [Not Recovered/Not Resolved]
  - Weight decreased [Not Recovered/Not Resolved]
  - Fatigue [Not Recovered/Not Resolved]
  - Muscle spasms [Not Recovered/Not Resolved]
  - Throat tightness [Not Recovered/Not Resolved]
  - Paraesthesia [Not Recovered/Not Resolved]
  - Asthenia [Not Recovered/Not Resolved]
  - Diarrhoea [Not Recovered/Not Resolved]
  - Angina pectoris [Unknown]
  - Alopecia [Not Recovered/Not Resolved]
  - Eye pain [Not Recovered/Not Resolved]
  - Visual impairment [Unknown]
  - Abdominal pain upper [Not Recovered/Not Resolved]
  - Disability [Not Recovered/Not Resolved]
  - Renal pain [Not Recovered/Not Resolved]
  - Spinal stenosis [Unknown]
  - Anxiety [Not Recovered/Not Resolved]
  - Sleep disorder due to a general medical condition [Not Recovered/Not Resolved]
  - Vomiting [Not Recovered/Not Resolved]
  - Headache [Not Recovered/Not Resolved]
  - Urticaria [Not Recovered/Not Resolved]
  - Presyncope [Unknown]
  - Hyperhidrosis [Not Recovered/Not Resolved]
  - Hypoaesthesia [Not Recovered/Not Resolved]
  - Tremor [Not Recovered/Not Resolved]
  - Rhinorrhoea [Not Recovered/Not Resolved]
  - Dizziness [Not Recovered/Not Resolved]
  - Chills [Not Recovered/Not Resolved]

NARRATIVE: CASE EVENT DATE: 2021
